FAERS Safety Report 9951925 (Version 1)
Quarter: 2014Q1

REPORT INFORMATION
  Report Type: Spontaneous
  Country: US (occurrence: US)
  Receive Date: 20140304
  Receipt Date: 20140304
  Transmission Date: 20141002
  Serious: No
  Sender: FDA-Public Use
  Company Number: US-AMGEN-USASP2013076467

PATIENT
  Age: 65 Year
  Sex: Male

DRUGS (10)
  1. ENBREL [Suspect]
     Indication: RHEUMATOID ARTHRITIS
     Dosage: 50 MG, QWK
     Route: 058
     Dates: start: 20121126
  2. CILOSTAZOL [Concomitant]
     Dosage: 100 MG, UNK
  3. METHOTREXATE [Concomitant]
     Dosage: 2.5 MG, UNK
  4. PREDNISONE [Concomitant]
     Dosage: 5 MG, UNK
  5. TAMSULOSIN HCL [Concomitant]
     Dosage: 0.4 MG, UNK
  6. FINASTERIDE [Concomitant]
     Dosage: 5 MG, UNK
  7. HYDROXYCHLOROQUINE [Concomitant]
     Dosage: 200 MG, UNK
  8. FOLIC ACID [Concomitant]
     Dosage: 1 MG, UNK
  9. METOPROLOL SUCCINATE [Concomitant]
     Dosage: 50 MG, UNK
  10. BENICAR HCT [Concomitant]
     Dosage: 40-12.5 MG, UNK

REACTIONS (1)
  - Pharyngeal ulceration [Recovered/Resolved]
